FAERS Safety Report 24880145 (Version 1)
Quarter: 2025Q1

REPORT INFORMATION
  Report Type: Spontaneous
  Country: NO (occurrence: NO)
  Receive Date: 20250123
  Receipt Date: 20250123
  Transmission Date: 20250409
  Serious: Yes (Disabling, Other)
  Sender: BRISTOL-MYERS SQUIBB COMPANY
  Company Number: None

PATIENT
  Age: 39 Year
  Sex: Male

DRUGS (2)
  1. ELIQUIS [Suspect]
     Active Substance: APIXABAN
     Indication: Thrombosis prophylaxis
     Dosage: INITIALLY 5 MG, REDUCED TO 2.5 MG (TWO TIMES DAILY) AFTER A SHORT TIME
     Route: 048
     Dates: start: 202212
  2. ELIQUIS [Suspect]
     Active Substance: APIXABAN
     Dosage: INITIALLY 5 MG, REDUCED TO 2.5 MG (TWO TIMES DAILY) AFTER A SHORT TIME
     Route: 048
     Dates: end: 202408

REACTIONS (5)
  - Disability [Not Recovered/Not Resolved]
  - Gait disturbance [Not Recovered/Not Resolved]
  - Pain in extremity [Not Recovered/Not Resolved]
  - Monoplegia [Not Recovered/Not Resolved]
  - Neuralgia [Not Recovered/Not Resolved]

NARRATIVE: CASE EVENT DATE: 20230401
